FAERS Safety Report 13449164 (Version 1)
Quarter: 2017Q2

REPORT INFORMATION
  Report Type: Spontaneous
  Country: US (occurrence: US)
  Receive Date: 20170417
  Receipt Date: 20170417
  Transmission Date: 20170830
  Serious: No
  Sender: FDA-Public Use
  Company Number: US-MANNKIND CORPORATION-2017MK000001

PATIENT
  Age: 70 Year
  Sex: Female
  Weight: 77.18 kg

DRUGS (5)
  1. LEVEMIR [Concomitant]
     Active Substance: INSULIN DETEMIR
     Indication: TYPE 2 DIABETES MELLITUS
     Dates: start: 20161213
  2. AFREZZA [Suspect]
     Active Substance: INSULIN HUMAN
     Indication: TYPE 2 DIABETES MELLITUS
     Dates: start: 20161213
  3. LEVEMIR [Concomitant]
     Active Substance: INSULIN DETEMIR
     Dates: end: 20161213
  4. LEVEMIR [Concomitant]
     Active Substance: INSULIN DETEMIR
     Dates: end: 20161213
  5. AFREZZA [Suspect]
     Active Substance: INSULIN HUMAN
     Dates: start: 20161213

REACTIONS (3)
  - Nausea [Not Recovered/Not Resolved]
  - Blood glucose increased [Recovered/Resolved]
  - Diarrhoea [Not Recovered/Not Resolved]

NARRATIVE: CASE EVENT DATE: 201612
